FAERS Safety Report 6379943-8 (Version None)
Quarter: 2009Q3

REPORT INFORMATION
  Report Type: 
  Country: None (occurrence: None)
  Receive Date: 20090923
  Receipt Date: 20090908
  Transmission Date: 20100115
  Serious: Yes (Hospitalization)
  Sender: FDA-Public Use
  Company Number: 2009AL005988

PATIENT
  Age: 60 Year
  Sex: Male

DRUGS (4)
  1. OXYCODONE HCL [Suspect]
  2. AVASTIN [Concomitant]
  3. CARBOPLATIN [Concomitant]
  4. PACLITAXEL [Concomitant]

REACTIONS (1)
  - ANAL FISSURE [None]
